FAERS Safety Report 5305987-0 (Version None)
Quarter: 2007Q2

REPORT INFORMATION
  Report Type: 
  Country: None (occurrence: None)
  Receive Date: 20070424
  Receipt Date: 20070420
  Transmission Date: 20071010
  Serious: Yes (Life-Threatening)
  Sender: FDA-Public Use
  Company Number: JP-BRISTOL-MYERS SQUIBB COMPANY-13733738

PATIENT
  Age: 54 Year
  Sex: Female

DRUGS (2)
  1. PARAPLATIN [Suspect]
     Indication: OVARIAN CANCER
     Route: 041
     Dates: start: 20051220, end: 20051220
  2. TAXOL [Suspect]
     Indication: OVARIAN CANCER
     Route: 041
     Dates: start: 20051220, end: 20051220

REACTIONS (1)
  - LIVER DISORDER [None]
